FAERS Safety Report 8852233 (Version 2)
Quarter: 2012Q4

REPORT INFORMATION
  Report Type: 
  Country: FR (occurrence: FR)
  Receive Date: 20121022
  Receipt Date: 20121031
  Transmission Date: 20130627
  Serious: Yes (Hospitalization, Other)
  Sender: FDA-Public Use
  Company Number: FR-B.I. PHARMACEUTICALS,INC./RIDGEFIELD-2012-FF-01374FF

PATIENT
  Sex: Female
  Weight: 60 kg

DRUGS (7)
  1. PRADAXA [Suspect]
     Indication: ATRIAL FIBRILLATION
     Dosage: 220 mg
     Route: 048
     Dates: start: 2009
  2. PRADAXA [Suspect]
     Indication: THROMBOSIS PROPHYLAXIS
  3. INEXIUM [Concomitant]
     Dosage: 20 mg
  4. RISPERDAL [Concomitant]
  5. DUSPATALIN [Concomitant]
     Dosage: 600 mg
  6. FUNGIZONE [Concomitant]
     Route: 048
  7. ZOLOFT [Concomitant]
     Dosage: 50 mg

REACTIONS (5)
  - Haematuria [Not Recovered/Not Resolved]
  - Prothrombin time ratio decreased [Unknown]
  - Activated partial thromboplastin time prolonged [Unknown]
  - International normalised ratio increased [Unknown]
  - Abdominal pain [Unknown]
